FAERS Safety Report 9088856 (Version 1)
Quarter: 2013Q1

REPORT INFORMATION
  Report Type: Report from Study
  Country: US (occurrence: US)
  Receive Date: 20130218
  Receipt Date: 20130218
  Transmission Date: 20140127
  Serious: No
  Sender: FDA-Public Use
  Company Number: US-ABBOTT-12P-163-0956948-00

PATIENT
  Sex: Male
  Weight: 103.06 kg

DRUGS (2)
  1. SIMCOR 500MG/40MG [Suspect]
     Indication: HIGH DENSITY LIPOPROTEIN DECREASED
     Dosage: 500/40
     Dates: start: 201206
  2. SIMCOR 500MG/40MG [Suspect]
     Indication: LOW DENSITY LIPOPROTEIN INCREASED

REACTIONS (5)
  - Flushing [Recovered/Resolved]
  - Burning sensation [Recovered/Resolved]
  - Burning sensation [Recovered/Resolved]
  - Erythema [Recovered/Resolved]
  - Erythema [Recovered/Resolved]
